FAERS Safety Report 4616542-X (Version None)
Quarter: 2005Q1

REPORT INFORMATION
  Report Type: 
  Country: None (occurrence: None)
  Receive Date: 20050318
  Receipt Date: 20050309
  Transmission Date: 20050727
  Serious: Yes (Hospitalization)
  Sender: FDA-Public Use
  Company Number: 2005-02-1095

PATIENT
  Age: 46 Year
  Sex: Male

DRUGS (6)
  1. PEG-INTRON [Suspect]
     Indication: HEPATITIS C
     Dosage: 120 MCG SUBCUTANEOUS
     Route: 058
     Dates: start: 20041018, end: 20050212
  2. RIBAVIRIN [Suspect]
     Indication: HEPATITIS C
     Dosage: 800 MG QD ORAL
     Route: 048
     Dates: start: 20041018, end: 20050212
  3. CIPRO [Concomitant]
  4. OXYCONTIN [Concomitant]
  5. PROMETHAZINE TABLETS [Concomitant]
  6. VALIUM [Concomitant]

REACTIONS (8)
  - ANAEMIA [None]
  - BLOOD MAGNESIUM DECREASED [None]
  - BLOOD POTASSIUM DECREASED [None]
  - EATING DISORDER [None]
  - HYPERSOMNIA [None]
  - MENINGITIS [None]
  - SEPSIS [None]
  - SPEECH DISORDER [None]
